FAERS Safety Report 5039821-3 (Version None)
Quarter: 2006Q2

REPORT INFORMATION
  Report Type: 
  Country: None (occurrence: None)
  Receive Date: 20060601
  Receipt Date: 20060110
  Transmission Date: 20061013
  Serious: No
  Sender: FDA-Public Use
  Company Number: 2006PV006893

PATIENT
  Age: 55 Year
  Sex: Female
  Weight: 102.5129 kg

DRUGS (2)
  1. BYETTA [Suspect]
     Indication: DIABETES MELLITUS NON-INSULIN-DEPENDENT
     Dosage: 5 MCG;BID;SC
     Route: 058
     Dates: start: 20051217
  2. GLUCOPHAGE [Concomitant]

REACTIONS (12)
  - ABDOMINAL PAIN UPPER [None]
  - COUGH [None]
  - DECREASED APPETITE [None]
  - EAR INFECTION [None]
  - EARLY SATIETY [None]
  - NASAL CONGESTION [None]
  - RHINORRHOEA [None]
  - SINUS HEADACHE [None]
  - SINUSITIS [None]
  - SNEEZING [None]
  - STOMACH DISCOMFORT [None]
  - WEIGHT DECREASED [None]
